FAERS Safety Report 9880351 (Version 4)
Quarter: 2014Q1

REPORT INFORMATION
  Report Type: Report from Study
  Country: CN (occurrence: CN)
  Receive Date: 20140207
  Receipt Date: 20140312
  Transmission Date: 20141002
  Serious: Yes (Hospitalization)
  Sender: FDA-Public Use
  Company Number: CN-ROCHE-1341867

PATIENT
  Age: 60 Year
  Sex: Female
  Weight: 63 kg

DRUGS (5)
  1. OBINUTUZUMAB [Suspect]
     Indication: DIFFUSE LARGE B-CELL LYMPHOMA
     Dosage: DOSE CONCENTRATION: 4MG/ML
     Route: 042
     Dates: start: 20140123
  2. CYCLOPHOSPHAMIDE [Suspect]
     Indication: DIFFUSE LARGE B-CELL LYMPHOMA
     Dosage: DATE OF MOST RECENT DOSEPRIOR TO SAE:  24/JAN/2014 (1258MG)
     Route: 042
     Dates: start: 20140124, end: 20140124
  3. DOXORUBICIN [Suspect]
     Indication: DIFFUSE LARGE B-CELL LYMPHOMA
     Dosage: DATE OF MOST RECENT DOSE PRIOR TO SAE:  24/JAN/2014 (84MG)
     Route: 042
     Dates: start: 20140124, end: 20140124
  4. VINCRISTINE [Suspect]
     Indication: DIFFUSE LARGE B-CELL LYMPHOMA
     Dosage: DATE OF MOST RECENT DOSE PRIOR TO SAE:  24/JAN/2014 (2MG)
     Route: 040
     Dates: start: 20140124, end: 20140124
  5. PREDNISONE [Suspect]
     Indication: DIFFUSE LARGE B-CELL LYMPHOMA
     Dosage: DATE OF MOST RECENT DOSE PRIOR TO SAE:  28/JAN/2014 (100MG)
     Route: 065
     Dates: start: 20140124

REACTIONS (1)
  - Intestinal perforation [Recovered/Resolved]
